FAERS Safety Report 5464105-9 (Version None)
Quarter: 2007Q3

REPORT INFORMATION
  Report Type: 
  Country: None (occurrence: None)
  Receive Date: 20070921
  Receipt Date: 20070912
  Transmission Date: 20080115
  Serious: Yes (Other)
  Sender: FDA-Public Use
  Company Number: GB-AMGEN-UK227184

PATIENT
  Sex: Female

DRUGS (23)
  1. PANITUMUMAB [Suspect]
     Indication: COLORECTAL CANCER
     Route: 042
     Dates: start: 20070205
  2. FLUOROURACIL [Concomitant]
  3. LEUCOVORIN [Concomitant]
  4. OXALIPLATIN [Concomitant]
  5. VASELINA LIQUIDA [Concomitant]
     Route: 061
     Dates: start: 20070417
  6. BUSCOPAN [Concomitant]
     Route: 048
     Dates: start: 20070503, end: 20070503
  7. ACETAMINOPHEN AND CODEINE PHOSPHATE [Concomitant]
     Route: 048
     Dates: start: 20070503, end: 20070503
  8. HYDROCORTISON [Concomitant]
     Route: 061
     Dates: start: 20070403, end: 20070417
  9. HYDROCORTISON [Concomitant]
     Route: 061
     Dates: start: 20070508, end: 20070530
  10. MAGNESIUM SULFATE [Concomitant]
     Route: 042
     Dates: start: 20070501, end: 20070502
  11. TAZOCIN (LEDERLE) [Concomitant]
     Route: 042
     Dates: start: 20070501, end: 20070503
  12. GENTAMYCIN SULFATE [Concomitant]
     Route: 042
     Dates: start: 20070502, end: 20070503
  13. SANDOCAL [Concomitant]
     Route: 048
     Dates: start: 20070502, end: 20070510
  14. PHOSPHATE-SANDOZ [Concomitant]
     Route: 048
     Dates: start: 20070502, end: 20070510
  15. CIPROFLOXACIN [Concomitant]
     Route: 048
     Dates: start: 20070503, end: 20070510
  16. POTASSIUM CHLORIDE [Concomitant]
     Route: 048
     Dates: start: 20070508, end: 20070510
  17. PARACETAMOL [Concomitant]
     Route: 048
  18. ELLESTE-DUET [Concomitant]
     Route: 048
  19. DEXAMETASON [Concomitant]
     Route: 048
     Dates: start: 20070206
  20. GRANISETRON  HCL [Concomitant]
     Route: 042
     Dates: start: 20070205
  21. DOMPERIDONE [Concomitant]
     Route: 048
     Dates: start: 20070205
  22. DOXYCYCLINE [Concomitant]
     Route: 061
     Dates: start: 20070212
  23. LACTULOSE [Concomitant]
     Route: 048
     Dates: start: 20070208

REACTIONS (1)
  - TRICHIASIS [None]
